FAERS Safety Report 8624394-6 (Version None)
Quarter: 2012Q3

REPORT INFORMATION
  Report Type: 
  Country: None (occurrence: None)
  Receive Date: 20120827
  Receipt Date: 20120822
  Transmission Date: 20120928
  Serious: Yes (Hospitalization)
  Sender: FDA-Public Use
  Company Number: FR-PFIZER INC-2012205523

PATIENT
  Age: 59 Year
  Sex: Female

DRUGS (10)
  1. PRAVASTATIN [Concomitant]
     Dosage: 40 MG, 1X/DAY
     Route: 048
  2. VICTAN [Concomitant]
     Dosage: 2 MG, 1X/DAY
     Route: 048
  3. AMLODIPINE BESYLATE [Suspect]
     Dosage: 5 MG, 1X/DAY
     Route: 048
     Dates: start: 20120521, end: 20120605
  4. ACARBOSE [Concomitant]
     Dosage: 150 MG, 1X/DAY
     Route: 048
  5. OMEPRAZOLE [Concomitant]
     Dosage: 10 MG, 1X/DAY
     Route: 048
  6. PERINDOPRIL ERBUMINE [Concomitant]
     Dosage: 10 MG, 1X/DAY
     Route: 048
  7. DUPHALAC [Concomitant]
     Dosage: 1 DF, 1X/DAY
     Route: 048
  8. SIBELIUM [Concomitant]
     Dosage: 10 MG, DAILY
  9. XANAX [Concomitant]
     Dosage: 0.5 MG, 1X/DAY
     Route: 048
  10. NOVOLOG MIX 70/30 [Concomitant]
     Dosage: 20 IU, 2X/DAY
     Route: 057

REACTIONS (3)
  - HYPONATRAEMIA [None]
  - OEDEMA PERIPHERAL [None]
  - HYPOKALAEMIA [None]
